FAERS Safety Report 11576238 (Version 2)
Quarter: 2015Q4

REPORT INFORMATION
  Report Type: Spontaneous
  Country: TR (occurrence: TR)
  Receive Date: 20150930
  Receipt Date: 20151006
  Transmission Date: 20160304
  Serious: Yes (Hospitalization)
  Sender: FDA-Public Use
  Company Number: TR-TEVA-597064ISR

PATIENT
  Age: 43 Year
  Sex: Male

DRUGS (4)
  1. CISPLATIN. [Suspect]
     Active Substance: CISPLATIN
     Indication: CHEMOTHERAPY
     Dosage: 25 MG/M2 ON DAYS 2-5, EVERY 21 DAYS
  2. MESNA. [Concomitant]
     Active Substance: MESNA
     Indication: CHEMOTHERAPY
     Dosage: 1500 MG/M2 ON DAYS 2-5, EVERY 21 DAYS
  3. IFOSFAMIDE. [Suspect]
     Active Substance: IFOSFAMIDE
     Indication: CHEMOTHERAPY
     Dosage: 1500 MG/M2 ON DAYS 2-5, EVERY 21 DAYS
  4. PACLITAXEL. [Suspect]
     Active Substance: PACLITAXEL
     Indication: CHEMOTHERAPY
     Dosage: 250 MG/M2 ON DAY 1, EVERY 21 DAYS

REACTIONS (1)
  - Thrombotic thrombocytopenic purpura [Recovered/Resolved]
